FAERS Safety Report 26177543 (Version 1)
Quarter: 2025Q4

REPORT INFORMATION
  Report Type: Spontaneous
  Country: US (occurrence: US)
  Receive Date: 20251219
  Receipt Date: 20251219
  Transmission Date: 20260118
  Serious: No
  Sender: STRIDES
  Company Number: US-STRIDES ARCOLAB LIMITED-2025SP011832

PATIENT
  Age: 60 Year
  Sex: Female

DRUGS (6)
  1. HALOPERIDOL [Suspect]
     Active Substance: HALOPERIDOL
     Indication: Delusional disorder, unspecified type
     Dosage: 2 MG, BID
     Route: 065
  2. VENLAFAXINE [Concomitant]
     Active Substance: VENLAFAXINE HYDROCHLORIDE
     Indication: Post-traumatic stress disorder
     Dosage: 150 MG
     Route: 065
  3. DIMETHYLTRYPTAMINE [Concomitant]
     Active Substance: DIMETHYLTRYPTAMINE
     Indication: Product used for unknown indication
     Dosage: 25 MILLILITER, ONCE A WEEK
     Route: 042
  4. MUPIROCIN [Concomitant]
     Active Substance: MUPIROCIN
     Indication: Delusional disorder, unspecified type
     Dosage: UNK
     Route: 061
  5. TACROLIMUS [Concomitant]
     Active Substance: TACROLIMUS
     Indication: Delusional disorder, unspecified type
     Dosage: UNK
     Route: 061
  6. CLOBETASOL [Concomitant]
     Active Substance: CLOBETASOL
     Indication: Delusional disorder, unspecified type
     Dosage: UNK
     Route: 061

REACTIONS (1)
  - Somnolence [Unknown]
